FAERS Safety Report 5067378-X (Version None)
Quarter: 2006Q3

REPORT INFORMATION
  Report Type: 
  Country: None (occurrence: None)
  Receive Date: 20060714
  Receipt Date: 20060606
  Transmission Date: 20061208
  Serious: No
  Sender: FDA-Public Use
  Company Number: 2006SP002328

PATIENT
  Age: 53 Year
  Sex: Male
  Weight: 86.1834 kg

DRUGS (4)
  1. LUNESTA [Suspect]
     Indication: INSOMNIA
     Dosage: 3 MG; 1X; ORAL
     Route: 048
     Dates: start: 20060531, end: 20060531
  2. SIMVASTATIN [Concomitant]
  3. ATENOLOL [Concomitant]
  4. PRILOSEC [Concomitant]

REACTIONS (1)
  - DYSGEUSIA [None]
